FAERS Safety Report 18064457 (Version 1)
Quarter: 2020Q3

REPORT INFORMATION
  Report Type: Spontaneous
  Country: US (occurrence: US)
  Receive Date: 20200723
  Receipt Date: 20200723
  Transmission Date: 20201103
  Serious: Yes (Hospitalization)
  Sender: FDA-Public Use
  Company Number: None

PATIENT
  Age: 57 Year
  Sex: Male

DRUGS (4)
  1. ADCIRCA [Suspect]
     Active Substance: TADALAFIL
     Route: 048
     Dates: start: 20171228
  2. OTEZLA [Concomitant]
     Active Substance: APREMILAST
  3. VELETRI [Concomitant]
     Active Substance: EPOPROSTENOL
  4. BOSENTAN. [Concomitant]
     Active Substance: BOSENTAN

REACTIONS (1)
  - Bacterial infection [None]

NARRATIVE: CASE EVENT DATE: 20200720
